FAERS Safety Report 4949361-5 (Version None)
Quarter: 2006Q1

REPORT INFORMATION
  Report Type: 
  Country: None (occurrence: None)
  Receive Date: 20060316
  Receipt Date: 20060306
  Transmission Date: 20060701
  Serious: Yes (Other)
  Sender: FDA-Public Use
  Company Number: 2005172988

PATIENT
  Sex: 0

DRUGS (1)
  1. LYRICA [Suspect]
     Indication: ILL-DEFINED DISORDER

REACTIONS (4)
  - COGNITIVE DISORDER [None]
  - CONVULSION [None]
  - DYSARTHRIA [None]
  - MEMORY IMPAIRMENT [None]
